FAERS Safety Report 16658125 (Version 2)
Quarter: 2024Q2

REPORT INFORMATION
  Report Type: Spontaneous
  Country: US (occurrence: US)
  Receive Date: 20190801
  Receipt Date: 20240612
  Transmission Date: 20240716
  Serious: Yes (Other)
  Sender: FDA-Public Use
  Company Number: US-SHIRE-US201924362

PATIENT
  Age: 72 Year
  Sex: Male

DRUGS (22)
  1. OBIZUR [Suspect]
     Active Substance: ANTIHEMOPHILIC FACTOR PORCINE, B-DOMAIN TRUNCATED RECOMBINANT
     Indication: Acquired haemophilia
     Dosage: UNK
     Route: 065
  2. OBIZUR [Suspect]
     Active Substance: ANTIHEMOPHILIC FACTOR PORCINE, B-DOMAIN TRUNCATED RECOMBINANT
     Indication: Percutaneous coronary intervention
  3. FEIBA NF [Suspect]
     Active Substance: ANTI-INHIBITOR COAGULANT COMPLEX
     Indication: Acquired haemophilia
     Dosage: UNK UNK, 3/WEEK
     Route: 065
  4. FEIBA NF [Suspect]
     Active Substance: ANTI-INHIBITOR COAGULANT COMPLEX
     Indication: Prophylaxis
     Dosage: UNK UNK, Q12H
     Route: 065
  5. HUMAN IMMUNOGLOBULIN G [Concomitant]
     Active Substance: HUMAN IMMUNOGLOBULIN G
     Indication: Factor VIII deficiency
     Dosage: UNK
     Route: 042
  6. HUMAN IMMUNOGLOBULIN G [Concomitant]
     Active Substance: HUMAN IMMUNOGLOBULIN G
     Indication: Pemphigoid
  7. HUMAN IMMUNOGLOBULIN G [Concomitant]
     Active Substance: HUMAN IMMUNOGLOBULIN G
     Indication: Coronary artery disease
  8. EMICIZUMAB [Concomitant]
     Active Substance: EMICIZUMAB
     Indication: Acquired haemophilia
     Dosage: 225 MILLIGRAM, 1/WEEK
     Route: 065
  9. EMICIZUMAB [Concomitant]
     Active Substance: EMICIZUMAB
     Indication: Percutaneous coronary intervention
     Dosage: 120 MILLIGRAM, 1/WEEK
     Route: 065
  10. ASPIRIN [Concomitant]
     Active Substance: ASPIRIN
     Indication: Product used for unknown indication
     Dosage: 325 MILLIGRAM
     Route: 065
  11. ASPIRIN [Concomitant]
     Active Substance: ASPIRIN
     Dosage: 81 MILLIGRAM
     Route: 065
  12. CLOPIDOGREL [Concomitant]
     Active Substance: CLOPIDOGREL BISULFATE
     Indication: Product used for unknown indication
     Dosage: 600 MILLIGRAM
     Route: 065
  13. CLOPIDOGREL [Concomitant]
     Active Substance: CLOPIDOGREL BISULFATE
     Dosage: 75 MILLIGRAM, QD
     Route: 065
  14. BIVALIRUDIN [Concomitant]
     Active Substance: BIVALIRUDIN
     Indication: Anticoagulant therapy
     Dosage: UNK
     Route: 065
  15. RITUXIMAB [Concomitant]
     Active Substance: RITUXIMAB
     Indication: Acquired haemophilia
     Dosage: UNK
     Route: 065
  16. CYCLOPHOSPHAMIDE [Concomitant]
     Active Substance: CYCLOPHOSPHAMIDE
     Indication: Acquired haemophilia
     Dosage: UNK
     Route: 065
  17. CYCLOSPORINE [Concomitant]
     Active Substance: CYCLOSPORINE
     Indication: Acquired haemophilia
     Dosage: UNK
     Route: 065
  18. AZATHIOPRINE [Concomitant]
     Active Substance: AZATHIOPRINE
     Indication: Acquired haemophilia
     Dosage: UNK
     Route: 065
  19. BORTEZOMIB [Concomitant]
     Active Substance: BORTEZOMIB
     Indication: Acquired haemophilia
     Dosage: UNK
     Route: 065
  20. MYCOPHENOLIC ACID [Concomitant]
     Active Substance: MYCOPHENOLIC ACID
     Indication: Acquired haemophilia
     Dosage: UNK
     Route: 065
  21. CLADRIBINE [Concomitant]
     Active Substance: CLADRIBINE
     Indication: Acquired haemophilia
     Dosage: UNK
     Route: 065
  22. TACROLIMUS [Concomitant]
     Active Substance: TACROLIMUS
     Indication: Acquired haemophilia
     Dosage: UNK
     Route: 065

REACTIONS (3)
  - Inhibiting antibodies [Not Recovered/Not Resolved]
  - Therapeutic response decreased [Unknown]
  - Drug ineffective [Unknown]
